FAERS Safety Report 10073241 (Version 2)
Quarter: 2014Q2

REPORT INFORMATION
  Report Type: Spontaneous
  Country: US (occurrence: US)
  Receive Date: 20140411
  Receipt Date: 20140417
  Transmission Date: 20141212
  Serious: Yes (Hospitalization)
  Sender: FDA-Public Use
  Company Number: US-GLAXOSMITHKLINE-A1068587A

PATIENT
  Age: 29 Year
  Sex: Female

DRUGS (4)
  1. VENTOLIN [Suspect]
     Indication: ASTHMA
     Dosage: 90MCG UNKNOWN
     Route: 065
     Dates: start: 20120605
  2. ADVAIR HFA [Suspect]
     Indication: ASTHMA
     Route: 065
  3. SINGULAIR [Concomitant]
  4. ZYRTEC [Concomitant]

REACTIONS (3)
  - Investigation [Unknown]
  - Asthma [Unknown]
  - Anxiety [Unknown]
